FAERS Safety Report 19817958 (Version 3)
Quarter: 2021Q4

REPORT INFORMATION
  Report Type: Report from Study
  Country: US (occurrence: US)
  Receive Date: 20210911
  Receipt Date: 20211026
  Transmission Date: 20220303
  Serious: No
  Sender: FDA-Public Use
  Company Number: NVSC2021US205497

PATIENT
  Sex: Male

DRUGS (2)
  1. COSENTYX [Suspect]
     Active Substance: SECUKINUMAB
     Indication: Psoriasis
     Route: 058
  2. COSENTYX [Suspect]
     Active Substance: SECUKINUMAB
     Route: 058

REACTIONS (7)
  - Arthritis [Unknown]
  - Skin plaque [Unknown]
  - Arthralgia [Unknown]
  - Fluid retention [Unknown]
  - Inappropriate schedule of product administration [Unknown]
  - Dry skin [Unknown]
  - Pruritus [Unknown]
